FAERS Safety Report 5171408-4 (Version None)
Quarter: 2006Q4

REPORT INFORMATION
  Report Type: 
  Country: None (occurrence: None)
  Receive Date: 20061208
  Receipt Date: 20061208
  Transmission Date: 20070319
  Serious: Yes (Death)
  Sender: FDA-Public Use
  Company Number: None

PATIENT
  Sex: Female
  Weight: 63 kg

DRUGS (15)
  1. ERLOTINIB [Suspect]
     Indication: NON-SMALL CELL LUNG CANCER METASTATIC
     Dosage: 150 MG DAILY PO
     Route: 048
     Dates: start: 20061006, end: 20061112
  2. ATORVASTATIN [Concomitant]
  3. ZETIA [Concomitant]
  4. NEXIUM [Concomitant]
  5. ACCUPRIL [Concomitant]
  6. TOPROL-XL [Concomitant]
  7. TIMOPTIC [Concomitant]
  8. XALATAN [Concomitant]
  9. VICODIN [Concomitant]
  10. LASIX [Concomitant]
  11. CELEBREX [Concomitant]
  12. FENTANYL TRANSDERMAL SYSTEM [Concomitant]
  13. MUCINEX [Concomitant]
  14. ONE A DAY VITAMIN [Concomitant]
  15. ADDITIONAL VITAMIN B COMPLEX AND C [Concomitant]

REACTIONS (3)
  - INTERSTITIAL LUNG DISEASE [None]
  - METASTASIS [None]
  - RESPIRATORY FAILURE [None]
